FAERS Safety Report 18794727 (Version 2)
Quarter: 2021Q1

REPORT INFORMATION
  Report Type: Spontaneous
  Country: GB (occurrence: GB)
  Receive Date: 20210127
  Receipt Date: 20210203
  Transmission Date: 20210419
  Serious: Yes (Hospitalization)
  Sender: FDA-Public Use
  Company Number: GB-BIOMARINAP-GB-2021-134643

PATIENT
  Sex: Male

DRUGS (1)
  1. NAGLAZYME [Suspect]
     Active Substance: GALSULFASE
     Indication: MUCOPOLYSACCHARIDOSIS VI
     Dosage: 35 MILLIGRAM, QW
     Route: 042

REACTIONS (4)
  - Limb operation [Recovered/Resolved]
  - Oropharyngeal surgery [Recovered/Resolved]
  - Anger [Unknown]
  - Malaise [Unknown]

NARRATIVE: CASE EVENT DATE: 202101
